FAERS Safety Report 5058169-4 (Version None)
Quarter: 2006Q3

REPORT INFORMATION
  Report Type: 
  Country: None (occurrence: None)
  Receive Date: 20060721
  Receipt Date: 20060713
  Transmission Date: 20061208
  Serious: Yes (Other)
  Sender: FDA-Public Use
  Company Number: 2006UW14536

PATIENT
  Age: 81 Year
  Sex: Male

DRUGS (6)
  1. CRESTOR [Suspect]
     Route: 048
     Dates: start: 20060622, end: 20060713
  2. RHOTRAL [Concomitant]
  3. AVAPRO [Concomitant]
  4. FUROSEMIDE [Concomitant]
  5. LOSEC [Concomitant]
     Route: 048
  6. ASPIRIN [Concomitant]

REACTIONS (5)
  - ARTHROPATHY [None]
  - ASTHENIA [None]
  - DYSSTASIA [None]
  - LOWER RESPIRATORY TRACT INFECTION [None]
  - MYALGIA [None]
